FAERS Safety Report 5708297-2 (Version None)
Quarter: 2008Q2

REPORT INFORMATION
  Report Type: 
  Country: None (occurrence: None)
  Receive Date: 20080417
  Receipt Date: 20080409
  Transmission Date: 20081010
  Serious: Yes (Other)
  Sender: FDA-Public Use
  Company Number: US-ELI_LILLY_AND_COMPANY-US200804002442

PATIENT
  Sex: Female

DRUGS (1)
  1. FORTEO [Suspect]
     Indication: OSTEOPOROSIS
     Dates: start: 20070501

REACTIONS (7)
  - ASTHMA [None]
  - BACK PAIN [None]
  - BRONCHITIS [None]
  - COUGH [None]
  - GAIT DISTURBANCE [None]
  - PARANASAL SINUS HYPERSECRETION [None]
  - SPINAL FUSION SURGERY [None]
